FAERS Safety Report 8422447-9 (Version None)
Quarter: 2012Q2

REPORT INFORMATION
  Report Type: 
  Country: None (occurrence: None)
  Receive Date: 20120608
  Receipt Date: 20120524
  Transmission Date: 20120825
  Serious: Yes (Death)
  Sender: FDA-Public Use
  Company Number: BE-WATSON-2012-09303

PATIENT
  Age: 61 Year
  Sex: Female

DRUGS (3)
  1. ATORVASTATIN [Suspect]
     Indication: HYPERCHOLESTEROLAEMIA
     Dosage: 10 MG, DAILY
     Route: 065
  2. NAPROXEN [Suspect]
     Indication: CHEST PAIN
  3. NAPROXEN [Suspect]
     Indication: ARTHRITIS
     Dosage: 500 MG, TID
     Route: 065

REACTIONS (8)
  - RHABDOMYOLYSIS [None]
  - MUSCLE NECROSIS [None]
  - RESPIRATORY FAILURE [None]
  - CARDIAC ARREST [None]
  - TOXIC EPIDERMAL NECROLYSIS [None]
  - RENAL FAILURE ACUTE [None]
  - MULTI-ORGAN FAILURE [None]
  - HEPATIC FAILURE [None]
